FAERS Safety Report 25374801 (Version 1)
Quarter: 2025Q2

REPORT INFORMATION
  Report Type: Spontaneous
  Country: US (occurrence: US)
  Receive Date: 20250529
  Receipt Date: 20250529
  Transmission Date: 20250716
  Serious: Yes (Hospitalization)
  Sender: ABBVIE
  Company Number: US-ABBVIE-6300971

PATIENT
  Age: 38 Year
  Sex: Female
  Weight: 56 kg

DRUGS (1)
  1. BOTOX [Suspect]
     Active Substance: ONABOTULINUMTOXINA
     Indication: Product used for unknown indication
     Route: 065
     Dates: start: 2024, end: 2024

REACTIONS (15)
  - Panic attack [Unknown]
  - Throat tightness [Unknown]
  - Heart rate increased [Unknown]
  - Headache [Unknown]
  - Dry mouth [Unknown]
  - Tremor [Unknown]
  - Asthenia [Unknown]
  - Paraesthesia [Unknown]
  - Vision blurred [Unknown]
  - Photophobia [Unknown]
  - Vertigo [Unknown]
  - Dizziness [Unknown]
  - Temperature intolerance [Unknown]
  - Tinnitus [Unknown]
  - Thyroid function test abnormal [Unknown]

NARRATIVE: CASE EVENT DATE: 20240524
